FAERS Safety Report 5216215-9 (Version None)
Quarter: 2007Q1

REPORT INFORMATION
  Report Type: 
  Country: None (occurrence: None)
  Receive Date: 20070123
  Receipt Date: 20070110
  Transmission Date: 20070707
  Serious: Yes (Hospitalization)
  Sender: FDA-Public Use
  Company Number: US-SHR-US-2006-024336

PATIENT
  Age: 61 Year
  Sex: Female
  Weight: 80.7 kg

DRUGS (4)
  1. BETASERON [Suspect]
     Indication: MULTIPLE SCLEROSIS
     Dosage: 8 MIU, EVERY 2D
     Route: 058
     Dates: start: 19960222
  2. DOXEPIN HCL [Concomitant]
     Dosage: 25 MG, 1X/DAY
     Route: 048
     Dates: start: 19990101
  3. AVAPRO [Concomitant]
     Indication: BLOOD PRESSURE
     Dosage: 75 MG, 1X/DAY
     Route: 048
  4. LORAZEPAM [Concomitant]
     Dosage: UNK, UNK
     Route: 048

REACTIONS (3)
  - POLYMYALGIA RHEUMATICA [None]
  - SYNOVIAL CYST [None]
  - THROMBOSIS [None]
